FAERS Safety Report 7571372-4 (Version None)
Quarter: 2011Q2

REPORT INFORMATION
  Report Type: 
  Country: None (occurrence: None)
  Receive Date: 20110624
  Receipt Date: 20110617
  Transmission Date: 20111010
  Serious: Yes (Hospitalization)
  Sender: FDA-Public Use
  Company Number: B0728534A

PATIENT

DRUGS (1)
  1. HYCAMTIN [Suspect]
     Route: 042

REACTIONS (1)
  - RENAL INFARCT [None]
